FAERS Safety Report 8888729 (Version 2)
Quarter: 2012Q4

REPORT INFORMATION
  Report Type: Report from Study
  Country: US (occurrence: US)
  Receive Date: 20121106
  Receipt Date: 20121203
  Transmission Date: 20130627
  Serious: Yes (Hospitalization)
  Sender: FDA-Public Use
  Company Number: US-CELGENEUS-163-21880-12103503

PATIENT
  Age: 44 Year
  Sex: Female
  Weight: 67.7 kg

DRUGS (27)
  1. REVLIMID [Suspect]
     Indication: MULTIPLE MYELOMA
     Dosage: 5 Milligram
     Route: 048
     Dates: start: 20111128, end: 20121024
  2. REVLIMID [Suspect]
     Route: 048
     Dates: start: 20110801
  3. REVLIMID [Suspect]
     Dosage: 5 Milligram
     Route: 048
     Dates: start: 20121122
  4. NUNN [Concomitant]
     Indication: ELECTROLYTE REPLACEMENT
     Route: 048
  5. YAZ [Concomitant]
     Indication: BIRTH CONTROL
     Dosage: 1
     Route: 048
     Dates: start: 20110430, end: 20121025
  6. ESTRA-NORTHO [Concomitant]
     Indication: HORMONE THERAPY
     Dosage: .5 Milligram
     Route: 048
     Dates: start: 20120917
  7. ESTRA-NORTHO [Concomitant]
     Indication: HOT FLASHES
  8. Z-PAK [Concomitant]
     Indication: SINUS CONGESTION
     Route: 065
     Dates: start: 20121013
  9. CIPROFLOXACIN [Concomitant]
     Indication: DRUG USE FOR UNKNOWN INDICATION
     Route: 065
  10. ESTRADIOL [Concomitant]
     Indication: DRUG USE FOR UNKNOWN INDICATION
     Route: 065
  11. CYMBALTA [Concomitant]
     Indication: DRUG USE FOR UNKNOWN INDICATION
     Dosage: 30 Milligram
     Route: 048
     Dates: start: 20120220
  12. CYMBALTA [Concomitant]
     Dosage: 60 Milligram
     Route: 048
  13. DEXILANT [Concomitant]
     Indication: DRUG USE FOR UNKNOWN INDICATION
     Dosage: 60 Milligram
     Route: 048
     Dates: start: 20101210
  14. NEURONTIN [Concomitant]
     Indication: DRUG USE FOR UNKNOWN INDICATION
     Dosage: 300 Milligram
     Route: 048
     Dates: start: 20110627
  15. NEURONTIN [Concomitant]
     Dosage: 200 Milligram
     Route: 048
  16. PROTONIX [Concomitant]
     Indication: DRUG USE FOR UNKNOWN INDICATION
     Dosage: 40 Milligram
     Route: 048
     Dates: start: 20110430
  17. ASPIRIN [Concomitant]
     Indication: DRUG USE FOR UNKNOWN INDICATION
     Dosage: 325 Milligram
     Route: 048
     Dates: start: 20111226
  18. FENTANYL [Concomitant]
     Indication: LUMBAR PAIN
     Dosage: 50 Microgram
     Route: 061
     Dates: start: 20110328
  19. FENTANYL [Concomitant]
     Dosage: 25 Microgram
     Route: 061
  20. BACTRIM DS [Concomitant]
     Indication: DRUG USE FOR UNKNOWN INDICATION
     Dosage: 2 Tablet
     Route: 048
     Dates: start: 20110822
  21. VALTREX [Concomitant]
     Indication: DRUG USE FOR UNKNOWN INDICATION
     Dosage: 1000 Milligram
     Route: 048
     Dates: start: 20111119
  22. PREMPRO [Concomitant]
     Indication: DRUG USE FOR UNKNOWN INDICATION
     Dosage: 0.625-2.5mg
     Route: 048
     Dates: start: 20120917, end: 20121025
  23. CALTRATE [Concomitant]
     Indication: DRUG USE FOR UNKNOWN INDICATION
     Dosage: 2 Tablet
     Route: 048
  24. LOMOTIL [Concomitant]
     Indication: LOOSE STOOLS
     Dosage: 2.5 Milligram
     Route: 048
  25. ZYRTEC [Concomitant]
     Indication: DRUG USE FOR UNKNOWN INDICATION
     Dosage: 10 Milligram
     Route: 048
  26. IMODIUM [Concomitant]
     Indication: DIARRHEA
     Dosage: 4 Milligram
     Route: 048
  27. IMODIUM [Concomitant]
     Indication: LOOSE STOOLS
     Dosage: After each loose stool, do not exceed 16mg in 24hr period
     Route: 048

REACTIONS (1)
  - Superior vena cava syndrome [Recovered/Resolved]
